FAERS Safety Report 6882792-5 (Version None)
Quarter: 2010Q3

REPORT INFORMATION
  Report Type: 
  Country: None (occurrence: None)
  Receive Date: 20100727
  Receipt Date: 20100720
  Transmission Date: 20110219
  Serious: Yes (Other)
  Sender: FDA-Public Use
  Company Number: ACO_01503_2010

PATIENT
  Sex: Female
  Weight: 89 kg

DRUGS (2)
  1. AMPYRA [Suspect]
     Indication: ASTHENIA
     Dosage: 10 MG BID  ORAL, 10 MG QD ORAL
     Route: 048
     Dates: start: 20100715, end: 20100718
  2. AMPYRA [Suspect]
     Indication: ASTHENIA
     Dosage: 10 MG BID  ORAL, 10 MG QD ORAL
     Route: 048
     Dates: start: 20100719

REACTIONS (3)
  - ACTIVITIES OF DAILY LIVING IMPAIRED [None]
  - FATIGUE [None]
  - FEELING ABNORMAL [None]
